FAERS Safety Report 5744895-8 (Version None)
Quarter: 2008Q2

REPORT INFORMATION
  Report Type: 
  Country: None (occurrence: None)
  Receive Date: 20080516
  Receipt Date: 20080501
  Transmission Date: 20081010
  Serious: Yes (Disabling)
  Sender: FDA-Public Use
  Company Number: 2008S1007653

PATIENT
  Age: 64 Year
  Sex: Male

DRUGS (5)
  1. DOXAZOSIN (DOXAZOSIN) [Suspect]
     Indication: HYPERTENSION
     Dosage: ORAL
     Route: 048
  2. ADALAT [Concomitant]
  3. ATENOLOL [Concomitant]
  4. QUININE [Concomitant]
  5. RAMIPRIL [Concomitant]

REACTIONS (1)
  - NEUROPATHY PERIPHERAL [None]
